FAERS Safety Report 4596337-6 (Version None)
Quarter: 2005Q1

REPORT INFORMATION
  Report Type: 
  Country: None (occurrence: None)
  Receive Date: 20050302
  Receipt Date: 20050216
  Transmission Date: 20050727
  Serious: Yes (Hospitalization)
  Sender: FDA-Public Use
  Company Number: PHBS2005JP02411

PATIENT
  Age: 41 Year
  Sex: Female

DRUGS (11)
  1. VOLTAREN [Suspect]
     Indication: PYREXIA
     Dosage: 25 MG, QD
     Route: 054
  2. AMOBARBITAL [Concomitant]
     Indication: SCHIZOPHRENIA
     Dosage: 400 MG, QD
     Route: 048
  3. CHLORPROMAZINE HYDROCHLORIDE [Concomitant]
     Indication: SCHIZOPHRENIA
     Dosage: 250 MG, QD
     Route: 048
  4. CARBAMAZEPINE [Concomitant]
     Indication: SCHIZOPHRENIA
     Dosage: 1000 MG, QD
     Route: 048
  5. BROMVALERYLUREA [Concomitant]
     Indication: SCHIZOPHRENIA
     Dosage: 600 MG, QD
     Route: 048
  6. LEVOMEPROMAZINE [Concomitant]
     Indication: SCHIZOPHRENIA
     Dosage: 300 MG, QD
     Route: 048
  7. BIPERIDEN HYDROCHLORIDE TAB [Concomitant]
     Indication: SCHIZOPHRENIA
     Dosage: 6 MG, QD
     Route: 048
  8. HALOPERIDOL [Concomitant]
     Indication: SCHIZOPHRENIA
     Dosage: 18 MG, QD
     Route: 048
  9. TRIAZOLAM [Concomitant]
     Indication: SCHIZOPHRENIA
     Dosage: 0.5 MG, QD
     Route: 048
  10. PROPOFOL [Concomitant]
  11. FLUID/ELECTROLYTE REPLACEMENT THERAPY [Concomitant]

REACTIONS (5)
  - ALANINE AMINOTRANSFERASE INCREASED [None]
  - ASPARTATE AMINOTRANSFERASE INCREASED [None]
  - BLOOD BILIRUBIN INCREASED [None]
  - BLOOD PRESSURE DECREASED [None]
  - DEPRESSED LEVEL OF CONSCIOUSNESS [None]
